FAERS Safety Report 8408195-X (Version None)
Quarter: 2012Q2

REPORT INFORMATION
  Report Type: 
  Country: None (occurrence: None)
  Receive Date: 20120604
  Receipt Date: 20120528
  Transmission Date: 20120825
  Serious: Yes (Other)
  Sender: FDA-Public Use
  Company Number: US-TEVA-340399USA

PATIENT
  Age: 56 Year
  Sex: Female

DRUGS (5)
  1. CITALOPRAM [Suspect]
  2. GLYCINE MAX SEED OIL [Suspect]
     Indication: CIRCULATORY COLLAPSE
     Dosage: 20% (20 G/DL) CONCENTRATION OF LIPID EMULSION; BOLUS (X1)
     Route: 040
  3. METOPROLOL TARTRATE [Suspect]
  4. NIFEDIPINE [Suspect]
  5. AMITRIPTYLINE HCL [Suspect]

REACTIONS (3)
  - SHOCK [None]
  - CIRCULATORY COLLAPSE [None]
  - HYPOGLYCAEMIA [None]
